FAERS Safety Report 13926278 (Version 3)
Quarter: 2017Q3

REPORT INFORMATION
  Report Type: Spontaneous
  Country: US (occurrence: US)
  Receive Date: 20170831
  Receipt Date: 20170929
  Transmission Date: 20171127
  Serious: Yes (Other)
  Sender: FDA-Public Use
  Company Number: US-ALLERGAN-1748542US

PATIENT
  Sex: Female

DRUGS (6)
  1. ESTRADIOL. [Concomitant]
     Active Substance: ESTRADIOL
     Indication: MENOPAUSE
     Dosage: 5 MG, UNK
     Dates: start: 201612
  2. BUPROPION. [Concomitant]
     Active Substance: BUPROPION
     Indication: PRODUCT USED FOR UNKNOWN INDICATION
     Dosage: 150 MG, BID
     Route: 065
     Dates: start: 2013
  3. SAPHRIS [Suspect]
     Active Substance: ASENAPINE MALEATE
     Indication: PRODUCT USED FOR UNKNOWN INDICATION
     Dosage: 5 MG, QPM
     Route: 065
     Dates: start: 2009
  4. SYNTHROID [Concomitant]
     Active Substance: LEVOTHYROXINE SODIUM
     Indication: PRODUCT USED FOR UNKNOWN INDICATION
     Dosage: UNK
     Route: 065
     Dates: start: 2013
  5. SAPHRIS [Suspect]
     Active Substance: ASENAPINE MALEATE
     Dosage: 10 MG, QPM
     Route: 065
  6. CITALOPRAM [Concomitant]
     Active Substance: CITALOPRAM HYDROBROMIDE
     Indication: PRODUCT USED FOR UNKNOWN INDICATION
     Dosage: 10 MG, BID
     Route: 065
     Dates: start: 2013

REACTIONS (19)
  - Feeling hot [Unknown]
  - Sleep disorder [Unknown]
  - Drug dose omission [Unknown]
  - Stress [Unknown]
  - Rash [Unknown]
  - Anxiety [Unknown]
  - Tri-iodothyronine free decreased [Unknown]
  - Dyskinesia [Unknown]
  - Hysterectomy [Unknown]
  - Pruritus [Unknown]
  - Dysstasia [Unknown]
  - Feeling abnormal [Unknown]
  - Hyperhidrosis [Unknown]
  - Psychomotor hyperactivity [Unknown]
  - Temperature intolerance [Unknown]
  - Hyperthyroidism [Unknown]
  - Sinus disorder [Unknown]
  - Memory impairment [Not Recovered/Not Resolved]
  - Drug intolerance [Unknown]

NARRATIVE: CASE EVENT DATE: 201604
